FAERS Safety Report 7936889-9 (Version None)
Quarter: 2011Q4

REPORT INFORMATION
  Report Type: 
  Country: None (occurrence: None)
  Receive Date: 20111123
  Receipt Date: 20111118
  Transmission Date: 20120403
  Serious: Yes (Hospitalization)
  Sender: FDA-Public Use
  Company Number: US-US-EMD SERONO, INC.-232445J10USA

PATIENT
  Sex: Female
  Weight: 64 kg

DRUGS (7)
  1. MULTI-VITAMIN [Concomitant]
  2. REBIF [Suspect]
     Indication: MULTIPLE SCLEROSIS
     Route: 058
     Dates: start: 20090427
  3. METOPROLOL TARTRATE [Concomitant]
  4. BACLOFEN [Concomitant]
  5. NAPROXEN (ALEVE) [Concomitant]
     Indication: PREMEDICATION
  6. DILANTIN [Concomitant]
     Indication: CONVULSION
  7. STEROIDS [Concomitant]
     Route: 042
     Dates: end: 20090901

REACTIONS (1)
  - URINARY TRACT INFECTION [None]
